FAERS Safety Report 14352010 (Version 1)
Quarter: 2018Q1

REPORT INFORMATION
  Report Type: Spontaneous
  Country: IL (occurrence: IL)
  Receive Date: 20180104
  Receipt Date: 20180104
  Transmission Date: 20180509
  Serious: Yes (Other)
  Sender: FDA-Public Use
  Company Number: IL-TEVA-2017-IL-842019

PATIENT
  Age: 28 Year
  Sex: Male

DRUGS (10)
  1. VIEKIRAX [Concomitant]
     Active Substance: OMBITASVIR\PARITAPREVIR\RITONAVIR
  2. NOVONORM [Concomitant]
     Active Substance: REPAGLINIDE
  3. FOLIC ACID. [Concomitant]
     Active Substance: FOLIC ACID
  4. NORMITEN [Concomitant]
     Active Substance: ATENOLOL
  5. PREDNISONE. [Concomitant]
     Active Substance: PREDNISONE
  6. RENVELA [Concomitant]
     Active Substance: SEVELAMER CARBONATE
  7. TRIBEMIN [Concomitant]
  8. PROGRAF [Suspect]
     Active Substance: TACROLIMUS\TACROLIMUS ANHYDROUS
     Dosage: 0.5 MG 1 TIME PER WEEK
     Dates: start: 20170101
  9. RIBAVIRIN. [Concomitant]
     Active Substance: RIBAVIRIN
  10. NORVASC [Concomitant]
     Active Substance: AMLODIPINE BESYLATE

REACTIONS (3)
  - Drug interaction [Unknown]
  - Chest pain [Unknown]
  - Drug level increased [Unknown]

NARRATIVE: CASE EVENT DATE: 2017
